FAERS Safety Report 18521452 (Version 2)
Quarter: 2020Q4

REPORT INFORMATION
  Report Type: Spontaneous
  Country: FR (occurrence: FR)
  Receive Date: 20201119
  Receipt Date: 20201203
  Transmission Date: 20210114
  Serious: Yes (Death, Other)
  Sender: FDA-Public Use
  Company Number: NVSC2020FR300056

PATIENT
  Age: 60 Year
  Sex: Female
  Weight: 136 kg

DRUGS (4)
  1. SANDIMMUN [Suspect]
     Active Substance: CYCLOSPORINE
     Indication: GRAFT VERSUS HOST DISEASE
     Dosage: 400 MG, Q24H
     Route: 041
     Dates: start: 20170328, end: 20170330
  2. ZELITREX [Suspect]
     Active Substance: VALACYCLOVIR HYDROCHLORIDE
     Indication: INFECTION PROPHYLAXIS
     Dosage: 500 MG,QD
     Route: 048
     Dates: end: 20170330
  3. TRIFLUCAN [Interacting]
     Active Substance: FLUCONAZOLE
     Indication: PRODUCT USED FOR UNKNOWN INDICATION
     Dosage: 400 MG,QD
     Route: 048
  4. CORDARONE [Interacting]
     Active Substance: AMIODARONE HYDROCHLORIDE
     Indication: MYOCARDIAL ISCHAEMIA
     Dosage: 200 MG,QD
     Route: 065

REACTIONS (1)
  - Acute kidney injury [Recovering/Resolving]

NARRATIVE: CASE EVENT DATE: 20170330
